FAERS Safety Report 4596178-X (Version None)
Quarter: 2005Q1

REPORT INFORMATION
  Report Type: 
  Country: None (occurrence: None)
  Receive Date: 20050225
  Receipt Date: 20050216
  Transmission Date: 20050727
  Serious: Yes (Death, Hospitalization, Other)
  Sender: FDA-Public Use
  Company Number: 2005-02-0104

PATIENT
  Age: 45 Year
  Sex: Male

DRUGS (7)
  1. BETNESOL INJECTABLE [Suspect]
     Indication: ERYTHEMA
     Dosage: INTRAVENOUS
     Route: 042
     Dates: start: 19990501, end: 20000101
  2. BETNESOL INJECTABLE [Suspect]
     Indication: NECROSIS
     Dosage: INTRAVENOUS
     Route: 042
     Dates: start: 19990501, end: 20000101
  3. PREDNISOLONE [Suspect]
     Indication: ERYTHEMA
     Dosage: 30 MG QD ORAL
     Route: 048
     Dates: start: 19990501, end: 20000101
  4. PREDNISOLONE [Suspect]
     Indication: NECROSIS
     Dosage: 30 MG QD ORAL
     Route: 048
     Dates: start: 19990501, end: 20000101
  5. CLOFAZIMINE [Concomitant]
  6. ANTIHISTAMINES (NOS) [Concomitant]
  7. SEDATIVE/HYPNOTIC [Concomitant]

REACTIONS (21)
  - ABDOMINAL DISTENSION [None]
  - CONJUNCTIVAL DISORDER [None]
  - DIARRHOEA [None]
  - DYSURIA [None]
  - HAEMOGLOBIN DECREASED [None]
  - HAND DEFORMITY [None]
  - LEPROSY [None]
  - NERVOUS SYSTEM DISORDER [None]
  - NODULE [None]
  - OEDEMA PERIPHERAL [None]
  - PALLOR [None]
  - PLATELET COUNT DECREASED [None]
  - PYREXIA [None]
  - SCAB [None]
  - SCAR [None]
  - SENSORY LOSS [None]
  - SKIN ATROPHY [None]
  - SKIN NECROSIS [None]
  - VOMITING [None]
  - WHITE BLOOD CELL COUNT INCREASED [None]
  - XEROSIS [None]
